FAERS Safety Report 12701632 (Version 1)
Quarter: 2016Q3

REPORT INFORMATION
  Report Type: Spontaneous
  Country: US (occurrence: None)
  Receive Date: 20160830
  Receipt Date: 20160830
  Transmission Date: 20161109
  Serious: Yes (Hospitalization)
  Sender: FDA-Public Use
  Company Number: None

PATIENT
  Age: 17 Year
  Sex: Male
  Weight: 84.2 kg

DRUGS (6)
  1. VINCRISTINE SULFATE. [Concomitant]
     Active Substance: VINCRISTINE SULFATE
     Dates: end: 20160811
  2. MERCAPTOPURINE. [Suspect]
     Active Substance: MERCAPTOPURINE
     Dates: end: 20160802
  3. CYTARABINE. [Suspect]
     Active Substance: CYTARABINE
     Dates: end: 20160719
  4. METHOTREXATE. [Suspect]
     Active Substance: METHOTREXATE
     Dates: end: 20160711
  5. CYCLOPHOSPHAMIDE. [Suspect]
     Active Substance: CYCLOPHOSPHAMIDE
     Dates: end: 20160719
  6. ONCASPAR [Suspect]
     Active Substance: PEGASPARGASE
     Dosage: 9037.5 UNIT
     Dates: end: 20160804

REACTIONS (7)
  - Anaemia [None]
  - Respiratory distress [None]
  - Restlessness [None]
  - Thrombocytopenia [None]
  - Febrile neutropenia [None]
  - Septic shock [None]
  - Pallor [None]

NARRATIVE: CASE EVENT DATE: 20160815
